FAERS Safety Report 9396135 (Version 6)
Quarter: 2014Q1

REPORT INFORMATION
  Report Type: Spontaneous
  Country: JP (occurrence: None)
  Receive Date: 20130708
  Receipt Date: 20140311
  Transmission Date: 20141002
  Serious: Yes (Hospitalization, Other)
  Sender: FDA-Public Use
  Company Number: ADR-2013-01108

PATIENT
  Age: 5 Year
  Sex: Male
  Weight: 12 kg

DRUGS (1)
  1. GABALON [Suspect]

REACTIONS (12)
  - Serratia test positive [None]
  - Sepsis [None]
  - Platelet count decreased [None]
  - Implant site infection [None]
  - Blood disorder [None]
  - Poisoning [None]
  - Pyrexia [None]
  - Hypotonia [None]
  - Pneumonia [None]
  - Pseudomonas test positive [None]
  - Sepsis [None]
  - Device related infection [None]
